FAERS Safety Report 24402499 (Version 2)
Quarter: 2024Q4

REPORT INFORMATION
  Report Type: Report from Study
  Country: US (occurrence: US)
  Receive Date: 20241007
  Receipt Date: 20241011
  Transmission Date: 20250115
  Serious: No
  Sender: ROCHE
  Company Number: US-ROCHE-10000078259

PATIENT
  Age: 86 Year
  Sex: Male

DRUGS (1)
  1. ERIVEDGE [Suspect]
     Active Substance: VISMODEGIB
     Indication: Basal cell carcinoma
     Route: 048

REACTIONS (11)
  - Alopecia [Unknown]
  - Arthralgia [Unknown]
  - Muscle spasms [Unknown]
  - Joint stiffness [Unknown]
  - Muscle spasms [Unknown]
  - Chills [Unknown]
  - Decreased appetite [Unknown]
  - Ageusia [Unknown]
  - Arthralgia [Unknown]
  - Alopecia [Unknown]
  - Tension [Unknown]
